FAERS Safety Report 10675099 (Version 1)
Quarter: 2014Q4

REPORT INFORMATION
  Report Type: Report from Study
  Country: US (occurrence: US)
  Receive Date: 20141224
  Receipt Date: 20141224
  Transmission Date: 20150529
  Serious: Yes (Hospitalization)
  Sender: FDA-Public Use
  Company Number: US-GLAXOSMITHKLINE-US2014GSK035268

PATIENT
  Age: 21 Year
  Sex: Male
  Weight: 55 kg

DRUGS (13)
  1. MERCAPTOPURINE. [Suspect]
     Active Substance: MERCAPTOPURINE
     Indication: T-CELL TYPE ACUTE LEUKAEMIA
     Dosage: UNK
     Route: 048
     Dates: end: 20140709
  2. CYTARABINE. [Suspect]
     Active Substance: CYTARABINE
     Indication: T-CELL TYPE ACUTE LEUKAEMIA
     Dosage: 75 MG/M2, CYC
     Route: 065
     Dates: end: 20141123
  3. NELARABINE SOLUTION FOR INJECTION [Suspect]
     Active Substance: NELARABINE
     Indication: T-CELL TYPE ACUTE LEUKAEMIA
     Dosage: 650 MG/M2, CYC
     Route: 042
     Dates: end: 20141110
  4. DEXAMETHSONE [Suspect]
     Active Substance: DEXAMETHASONE
     Indication: T-CELL TYPE ACUTE LEUKAEMIA
     Dosage: 5 MG/M2, CYC
     Route: 048
     Dates: end: 20141022
  5. ERWINIA ASPARAGNSE [Suspect]
     Active Substance: ASPARAGINASE ERWINIA CHRYSANTHEMI
     Indication: T-CELL TYPE ACUTE LEUKAEMIA
     Dosage: UNK, CYC
     Dates: end: 20140710
  6. PREDNISONE. [Suspect]
     Active Substance: PREDNISONE
     Indication: T-CELL TYPE ACUTE LEUKAEMIA
     Dosage: UNK
     Route: 065
     Dates: end: 20140501
  7. CYCLOPHOSPHAMIDE SOLUTION FOR INJECTION/INFUSION [Suspect]
     Active Substance: CYCLOPHOSPHAMIDE
     Indication: T-CELL TYPE ACUTE LEUKAEMIA
     Dosage: 1000 MG/M2, CYC
     Route: 042
     Dates: end: 20141113
  8. THIOGUANINE TABLET [Suspect]
     Active Substance: THIOGUANINE
     Indication: T-CELL TYPE ACUTE LEUKAEMIA
     Dosage: 60 MG/M2, CYC
     Route: 048
     Dates: end: 20141126
  9. INTRAVENOUS FLUIDS [Concomitant]
  10. METHOTREXATE [Suspect]
     Active Substance: METHOTREXATE
     Indication: T-CELL TYPE ACUTE LEUKAEMIA
     Dosage: UNK, CYC
     Route: 037
     Dates: end: 20141120
  11. VINCRISTINE SULFATE. [Suspect]
     Active Substance: VINCRISTINE SULFATE
     Indication: T-CELL TYPE ACUTE LEUKAEMIA
     Dosage: 1.5 MG/M2, CYC
     Route: 042
     Dates: end: 20141126
  12. DAUNORUBICIN [Suspect]
     Active Substance: DAUNORUBICIN
     Indication: T-CELL TYPE ACUTE LEUKAEMIA
     Dosage: UNK
     Route: 065
     Dates: end: 20140724
  13. DOXORUBICIN HYDROCHLORIDE. [Suspect]
     Active Substance: DOXORUBICIN HYDROCHLORIDE
     Indication: T-CELL TYPE ACUTE LEUKAEMIA
     Dosage: UNK
     Route: 065
     Dates: end: 20141015

REACTIONS (1)
  - Decreased appetite [Recovered/Resolved]

NARRATIVE: CASE EVENT DATE: 20141208
